FAERS Safety Report 10780130 (Version 1)
Quarter: 2015Q1

REPORT INFORMATION
  Report Type: Spontaneous
  Country: FR (occurrence: FR)
  Receive Date: 20150210
  Receipt Date: 20150210
  Transmission Date: 20150721
  Serious: Yes (Other)
  Sender: FDA-Public Use
  Company Number: FR-BAYER-2015-015405

PATIENT
  Age: 21 Year
  Sex: Female

DRUGS (6)
  1. SYSTEPIN [Concomitant]
     Dosage: UNK
     Route: 048
     Dates: start: 20141123
  2. UTROGESTAN [Concomitant]
     Active Substance: PROGESTERONE
     Dosage: UNK
     Route: 067
     Dates: start: 20141123
  3. UVEDOSE [Concomitant]
     Active Substance: CHOLECALCIFEROL
     Dosage: 1 DF, UNK
     Route: 048
     Dates: end: 20141105
  4. DOLIPRANE [Concomitant]
     Active Substance: ACETAMINOPHEN
     Dosage: UNK
     Route: 048
     Dates: start: 20141123
  5. VAXIGRIP [Concomitant]
     Active Substance: INFLUENZA VIRUS VACCINE
     Dosage: UNK
     Route: 058
     Dates: start: 20141114, end: 20141114
  6. ADALAT [Suspect]
     Active Substance: NIFEDIPINE
     Indication: THREATENED LABOUR
     Dosage: 30 MG
     Route: 048
     Dates: start: 20141123, end: 20141123

REACTIONS (4)
  - Hypotension [Recovered/Resolved]
  - Skin reaction [Recovered/Resolved]
  - Tachycardia [Recovered/Resolved]
  - Chest pain [Recovered/Resolved]

NARRATIVE: CASE EVENT DATE: 20141123
